FAERS Safety Report 16560284 (Version 3)
Quarter: 2019Q4

REPORT INFORMATION
  Report Type: Spontaneous
  Country: US (occurrence: US)
  Receive Date: 20190711
  Receipt Date: 20191021
  Transmission Date: 20200122
  Serious: No
  Sender: FDA-Public Use
  Company Number: US-SA-2019SA181850

PATIENT
  Age: 64 Year
  Sex: Male
  Weight: 106.58 kg

DRUGS (31)
  1. DUPIXENT [Suspect]
     Active Substance: DUPILUMAB
     Indication: DERMATITIS ATOPIC
     Dosage: 300 MG, QOW
     Route: 058
     Dates: start: 20190530
  2. CROMOLYN SODIUM. [Concomitant]
     Active Substance: CROMOLYN SODIUM
     Dosage: 100MG/5ML
  3. SERTRALINE HCL [Concomitant]
     Active Substance: SERTRALINE HYDROCHLORIDE
  4. METOPROLOL TARTRATE. [Concomitant]
     Active Substance: METOPROLOL TARTRATE
  5. IRON [Concomitant]
     Active Substance: IRON
     Indication: ANAEMIA
     Dosage: 65 MG, BID
     Route: 048
     Dates: start: 201904
  6. FLONASE ALLERGY RELIEF [Concomitant]
     Active Substance: FLUTICASONE PROPIONATE
     Indication: RHINITIS ALLERGIC
     Dosage: 2 SPRAYS PER SIDE DAILY, 50 MCG SPRAY
     Route: 045
  7. ASPIRIN (E.C.) [Concomitant]
     Active Substance: ASPIRIN
     Indication: CARDIAC DISORDER
     Dosage: 81 MG, QD
  8. VITAMIN D3 [Concomitant]
     Active Substance: CHOLECALCIFEROL
  9. KETOCONAZOLE. [Concomitant]
     Active Substance: KETOCONAZOLE
  10. MULTIVITAMINS [VITAMINS NOS] [Concomitant]
     Active Substance: VITAMINS
     Dosage: UNK, BID
  11. TOUJEO MAX SOLOSTAR [Concomitant]
  12. HUMALOG [Concomitant]
     Active Substance: INSULIN LISPRO
  13. ESOMEPRAZOLE. [Concomitant]
     Active Substance: ESOMEPRAZOLE MAGNESIUM
  14. CHLORTHALIDONE. [Concomitant]
     Active Substance: CHLORTHALIDONE
  15. VASCEPA [Concomitant]
     Active Substance: ICOSAPENT ETHYL
  16. AQUANIL HC [Concomitant]
     Active Substance: HYDROCORTISONE
     Indication: DERMATITIS ATOPIC
     Dosage: UNK, PRN
     Route: 061
     Dates: start: 2011
  17. MG217 MEDICATED COAL TAR [Concomitant]
     Indication: PSORIASIS
     Dosage: UNK, PRN
  18. OZEMPIC [Concomitant]
     Active Substance: SEMAGLUTIDE
  19. MONTELUKAST SODIUM. [Concomitant]
     Active Substance: MONTELUKAST SODIUM
  20. CALAMINE [Concomitant]
     Active Substance: CALAMINE\FERRIC OXIDE RED\ZINC OXIDE
     Indication: DERMATITIS ATOPIC
     Dosage: UNK, PRN
     Route: 061
     Dates: start: 2011
  21. ATORVASTATIN CALCIUM. [Concomitant]
     Active Substance: ATORVASTATIN CALCIUM
  22. METFORMIN HCL PFIZER [Concomitant]
     Active Substance: METFORMIN HYDROCHLORIDE
  23. MUPIROCIN. [Concomitant]
     Active Substance: MUPIROCIN
  24. EUCRISA [Concomitant]
     Active Substance: CRISABOROLE
  25. DOXAZOSIN MESYLATE. [Concomitant]
     Active Substance: DOXAZOSIN MESYLATE
  26. OLOPATADINE. [Concomitant]
     Active Substance: OLOPATADINE
  27. LIDOCAINE HYDROCORTISONE [Concomitant]
     Indication: PSORIASIS
     Dosage: UNK, PRN
  28. VERAPAMIL [Concomitant]
     Active Substance: VERAPAMIL HYDROCHLORIDE
  29. SARNA SENSITIVE [Concomitant]
  30. DESLORATADINE. [Concomitant]
     Active Substance: DESLORATADINE
  31. LISINOPRIL. [Concomitant]
     Active Substance: LISINOPRIL

REACTIONS (4)
  - Arthralgia [Recovering/Resolving]
  - Myalgia [Recovered/Resolved]
  - Malaise [Recovered/Resolved]
  - Gait disturbance [Recovered/Resolved]

NARRATIVE: CASE EVENT DATE: 20190628
